FAERS Safety Report 7742049-7 (Version None)
Quarter: 2011Q3

REPORT INFORMATION
  Report Type: 
  Country: None (occurrence: None)
  Receive Date: 20110912
  Receipt Date: 20110906
  Transmission Date: 20111222
  Serious: Yes (Disabling, Other)
  Sender: FDA-Public Use
  Company Number: PHHY2011RU71927

PATIENT
  Age: 56 Year
  Sex: Female

DRUGS (1)
  1. ZOLEDRONOC ACID [Suspect]
     Indication: OSTEOPOROSIS POSTMENOPAUSAL
     Dosage: UNK UKN, UNK
     Route: 042
     Dates: start: 20110804

REACTIONS (6)
  - DIARRHOEA [None]
  - CHILLS [None]
  - BLOOD PRESSURE SYSTOLIC INCREASED [None]
  - ARTHRALGIA [None]
  - HYPERTHERMIA [None]
  - HYPERTENSIVE CRISIS [None]
